FAERS Safety Report 4451441-8 (Version None)
Quarter: 2004Q3

REPORT INFORMATION
  Report Type: 
  Country: None (occurrence: None)
  Receive Date: 20040916
  Receipt Date: 20040910
  Transmission Date: 20050211
  Serious: Yes (Hospitalization)
  Sender: FDA-Public Use
  Company Number: CH-ROCHE-380146

PATIENT
  Age: 84 Year
  Sex: Female

DRUGS (5)
  1. TOREM [Suspect]
     Indication: DRUG USE FOR UNKNOWN INDICATION
     Route: 048
     Dates: end: 20040617
  2. ALDACTONE [Suspect]
     Indication: DRUG USE FOR UNKNOWN INDICATION
     Route: 048
  3. BLOPRESS [Suspect]
     Indication: DRUG USE FOR UNKNOWN INDICATION
     Route: 048
     Dates: end: 20040617
  4. CORDARONE [Concomitant]
     Route: 048
  5. ACETYLSALICYLIC ACID [Concomitant]
     Dosage: FILM COATED TABLETS.
     Route: 048

REACTIONS (7)
  - BRADYCARDIA [None]
  - CHEST PAIN [None]
  - DYSPNOEA [None]
  - HYPERKALAEMIA [None]
  - PARAESTHESIA [None]
  - RENAL FAILURE ACUTE [None]
  - RENAL FAILURE CHRONIC [None]
